FAERS Safety Report 10581677 (Version 2)
Quarter: 2014Q4

REPORT INFORMATION
  Report Type: Spontaneous
  Country: US (occurrence: US)
  Receive Date: 20141113
  Receipt Date: 20141117
  Transmission Date: 20150529
  Serious: No
  Sender: FDA-Public Use
  Company Number: US-009507513-1411USA005835

PATIENT
  Sex: Male

DRUGS (1)
  1. ASMANEX [Suspect]
     Active Substance: MOMETASONE FUROATE
     Dosage: ONE INHALATION, TWICE A DAY
     Route: 055
     Dates: start: 2011

REACTIONS (2)
  - Cough [Unknown]
  - Product quality issue [Unknown]
